FAERS Safety Report 22831145 (Version 3)
Quarter: 2024Q3

REPORT INFORMATION
  Report Type: Spontaneous
  Country: CA (occurrence: CA)
  Receive Date: 20230817
  Receipt Date: 20240805
  Transmission Date: 20241017
  Serious: Yes (Other)
  Sender: AUROBINDO
  Company Number: CA-AUROBINDO-AUR-APL-2023-052581

PATIENT
  Age: 51 Year
  Sex: Male

DRUGS (19)
  1. AMLODIPINE [Suspect]
     Active Substance: AMLODIPINE BESYLATE
     Indication: Secondary progressive multiple sclerosis
     Dosage: 5 MILLIGRAM, ONCE A DAY
     Route: 065
  2. AMLODIPINE [Suspect]
     Active Substance: AMLODIPINE BESYLATE
     Indication: Secondary progressive multiple sclerosis
     Dosage: 5 MILLIGRAM, ONCE A DAY
     Route: 065
  3. IRBESARTAN [Suspect]
     Active Substance: IRBESARTAN
     Indication: Secondary progressive multiple sclerosis
     Dosage: 150 MILLIGRAM, ONCE A DAY
     Route: 065
  4. RABEPRAZOLE SODIUM [Suspect]
     Active Substance: RABEPRAZOLE SODIUM
     Indication: Secondary progressive multiple sclerosis
     Dosage: 20 MILLIGRAM, ONCE A DAY
     Route: 065
  5. RABEPRAZOLE [Suspect]
     Active Substance: RABEPRAZOLE
     Indication: Secondary progressive multiple sclerosis
     Dosage: 20 MILLIGRAM, ONCE A DAY
     Route: 048
  6. BACLOFEN [Suspect]
     Active Substance: BACLOFEN
     Indication: Secondary progressive multiple sclerosis
     Dosage: 10 MILLIGRAM, 3 TIMES A DAY (3 EVERY 1 DAYS)
     Route: 065
  7. BACLOFEN [Suspect]
     Active Substance: BACLOFEN
     Dosage: 10 MILLIGRAM (1 EVERY 8 HOURS)
     Route: 065
  8. BUPROPION HYDROCHLORIDE [Concomitant]
     Active Substance: BUPROPION HYDROCHLORIDE
     Indication: Product used for unknown indication
     Dosage: 300 MILLIGRAM, ONCE A DAY
     Route: 065
  9. DALFAMPRIDINE [Concomitant]
     Active Substance: DALFAMPRIDINE
     Indication: Product used for unknown indication
     Dosage: 10 MILLIGRAM, ONCE A DAY
     Route: 065
  10. DALFAMPRIDINE [Concomitant]
     Active Substance: DALFAMPRIDINE
     Indication: Product used for unknown indication
     Dosage: 10 MILLIGRAM, ONCE A DAY
     Route: 065
  11. GABAPENTIN [Concomitant]
     Active Substance: GABAPENTIN
     Indication: Product used for unknown indication
     Dosage: 100 MILLIGRAM, ONCE A DAY
     Route: 065
  12. GABAPENTIN [Concomitant]
     Active Substance: GABAPENTIN
     Dosage: 100 MILLIGRAM, TWO TIMES A DAY
     Route: 065
  13. GABAPENTIN [Concomitant]
     Active Substance: GABAPENTIN
     Dosage: 100 MILLIGRAM, FOUR TIMES/DAY
     Route: 065
  14. MEXILETINE [Concomitant]
     Active Substance: MEXILETINE
     Indication: Product used for unknown indication
     Dosage: 300 MILLIGRAM, 3 TIMES A DAY
     Route: 065
  15. MIRABEGRON [Concomitant]
     Active Substance: MIRABEGRON
     Indication: Micturition urgency
     Dosage: 50 MILLIGRAM
     Route: 065
  16. MORNIFLUMATE [Concomitant]
     Active Substance: MORNIFLUMATE
     Indication: Product used for unknown indication
     Dosage: 0.4 MILLIGRAM, ONCE A DAY
     Route: 065
  17. MYRBETRIQ [Concomitant]
     Active Substance: MIRABEGRON
     Indication: Product used for unknown indication
     Dosage: 50 MILLIGRAM
     Route: 065
  18. OXYBUTYNIN CHLORIDE [Concomitant]
     Active Substance: OXYBUTYNIN CHLORIDE
     Indication: Micturition urgency
     Dosage: 5 MILLIGRAM, ONCE A DAY
     Route: 065
  19. WELLBUTRIN [Concomitant]
     Active Substance: BUPROPION HYDROCHLORIDE
     Indication: Product used for unknown indication
     Dosage: 300 MILLIGRAM, ONCE A DAY
     Route: 065

REACTIONS (13)
  - Arthralgia [Unknown]
  - Clonus [Unknown]
  - Constipation [Unknown]
  - Dry mouth [Unknown]
  - Fatigue [Unknown]
  - Hypoaesthesia [Unknown]
  - Muscle spasticity [Unknown]
  - Muscular dystrophy [Unknown]
  - Neuralgia [Unknown]
  - Neurogenic bladder [Unknown]
  - Paraesthesia [Unknown]
  - Urinary retention [Unknown]
  - Off label use [Unknown]
